APPROVED DRUG PRODUCT: CANDESARTAN CILEXETIL
Active Ingredient: CANDESARTAN CILEXETIL
Strength: 8MG
Dosage Form/Route: TABLET;ORAL
Application: A206233 | Product #001 | TE Code: AB
Applicant: PRINSTON PHARMACEUTICAL INC
Approved: Aug 21, 2023 | RLD: No | RS: No | Type: RX